FAERS Safety Report 10355556 (Version 1)
Quarter: 2014Q3

REPORT INFORMATION
  Report Type: Spontaneous
  Country: US (occurrence: None)
  Receive Date: 20140728
  Receipt Date: 20140728
  Transmission Date: 20150326
  Serious: Yes (Hospitalization)
  Sender: FDA-Public Use
  Company Number: BR14-277-AE

PATIENT
  Age: 17 Month
  Sex: Male

DRUGS (1)
  1. BUPRENORPHINE HCL/NALOXONE HCL DIHYDRATE [Suspect]
     Active Substance: BUPRENORPHINE\NALOXONE
     Indication: PRODUCT USED FOR UNKNOWN INDICATION
     Route: 048

REACTIONS (4)
  - Somnolence [None]
  - Pupillary disorder [None]
  - Accidental exposure to product by child [None]
  - Overdose [None]
